FAERS Safety Report 8810785 (Version 1)
Quarter: 2012Q4

REPORT INFORMATION
  Report Type: 
  Country: US (occurrence: US)
  Receive Date: 20120927
  Receipt Date: 20120927
  Transmission Date: 20130627
  Serious: Yes (Other)
  Sender: FDA-Public Use
  Company Number: US-BAYER-2012-098112

PATIENT
  Age: 30 Year
  Sex: Female

DRUGS (2)
  1. MIRENA [Suspect]
     Indication: VAGINAL HAEMORRHAGE
     Dosage: 20 mcg/24hr, CONT
     Route: 015
     Dates: start: 20120725
  2. MIRENA [Suspect]
     Indication: MENSTRUATION IRREGULAR

REACTIONS (5)
  - Genital haemorrhage [None]
  - Pelvic pain [None]
  - Abdominal pain [None]
  - Vaginal lesion [None]
  - Procedural pain [None]
